FAERS Safety Report 16063973 (Version 1)
Quarter: 2019Q1

REPORT INFORMATION
  Report Type: Spontaneous
  Country: IN (occurrence: IN)
  Receive Date: 20190312
  Receipt Date: 20190312
  Transmission Date: 20190418
  Serious: Yes (Other)
  Sender: FDA-Public Use
  Company Number: IN-PFIZER INC-2019103410

PATIENT
  Age: 48 Year
  Sex: Female

DRUGS (5)
  1. FEMPRO [Concomitant]
     Dosage: 2.5 MG, 1X/DAY
     Route: 048
  2. PALBACE [Suspect]
     Active Substance: PALBOCICLIB
     Indication: BREAST CANCER METASTATIC
     Dosage: 125 MG, ONCE A DAY
     Route: 048
     Dates: start: 20171115
  3. SHELCAL [Concomitant]
     Active Substance: CALCIUM CARBONATE\CHOLECALCIFEROL
     Dosage: ONCE DAILY (HD)
     Route: 048
  4. ZOLASTA [Concomitant]
     Dosage: 4 MG, UNK
  5. DULOXETINE. [Concomitant]
     Active Substance: DULOXETINE
     Dosage: 30 MG, UNK

REACTIONS (4)
  - Creatinine renal clearance decreased [Unknown]
  - Neuropathy peripheral [Unknown]
  - Neutrophil count decreased [Unknown]
  - Cough [Unknown]

NARRATIVE: CASE EVENT DATE: 20171129
